FAERS Safety Report 10052301 (Version 1)
Quarter: 2014Q2

REPORT INFORMATION
  Report Type: Spontaneous
  Country: GR (occurrence: GR)
  Receive Date: 20140402
  Receipt Date: 20140402
  Transmission Date: 20141212
  Serious: Yes (Other)
  Sender: FDA-Public Use
  Company Number: GR-ROCHE-1374710

PATIENT
  Age: 69 Year
  Sex: Male

DRUGS (4)
  1. PEGASYS [Suspect]
     Indication: CHRONIC HEPATITIS C
     Route: 065
  2. PEGASYS [Suspect]
     Route: 065
  3. COPEGUS [Suspect]
     Indication: CHRONIC HEPATITIS C
     Route: 065
  4. COPEGUS [Suspect]
     Route: 065

REACTIONS (2)
  - Rash [Recovering/Resolving]
  - Eosinophilia [Recovering/Resolving]
